FAERS Safety Report 8364705-2 (Version None)
Quarter: 2012Q2

REPORT INFORMATION
  Report Type: 
  Country: None (occurrence: None)
  Receive Date: 20120516
  Receipt Date: 20120507
  Transmission Date: 20120825
  Serious: Yes (Hospitalization, Other)
  Sender: FDA-Public Use
  Company Number: US-AMGEN-USASP2012021519

PATIENT
  Age: 36 Year
  Sex: Female
  Weight: 69.841 kg

DRUGS (2)
  1. ENBREL [Suspect]
     Indication: RHEUMATOID ARTHRITIS
     Dosage: 50 MG, QWK
     Route: 058
     Dates: start: 20040206
  2. PRENATAL VITAMINS                  /01549301/ [Concomitant]
     Dosage: 1 PER DAY
     Dates: start: 20110730, end: 20120210

REACTIONS (4)
  - PREMATURE DELIVERY [None]
  - STREPTOCOCCUS TEST POSITIVE [None]
  - PREMATURE LABOUR [None]
  - MATERNAL EXPOSURE DURING PREGNANCY [None]
